FAERS Safety Report 24378070 (Version 1)
Quarter: 2024Q3

REPORT INFORMATION
  Report Type: Spontaneous
  Country: US (occurrence: US)
  Receive Date: 20240930
  Receipt Date: 20240930
  Transmission Date: 20241017
  Serious: No
  Sender: SANDOZ
  Company Number: US-SANDOZ-SDZ2024US082861

PATIENT

DRUGS (1)
  1. GLATOPA [Suspect]
     Active Substance: GLATIRAMER ACETATE
     Indication: Product used for unknown indication
     Dosage: 3 TIMES A WEEK
     Route: 065

REACTIONS (3)
  - Injection site injury [Unknown]
  - Injection site indentation [Unknown]
  - Device mechanical issue [Unknown]
